FAERS Safety Report 7490407-0 (Version None)
Quarter: 2011Q2

REPORT INFORMATION
  Report Type: 
  Country: None (occurrence: None)
  Receive Date: 20110517
  Receipt Date: 20110517
  Transmission Date: 20111010
  Serious: Yes (Other)
  Sender: FDA-Public Use
  Company Number: None

PATIENT
  Sex: Male

DRUGS (2)
  1. VOTRIENT [Suspect]
     Indication: LUNG CANCER METASTATIC
     Dosage: 200MG QID PO
     Route: 048
     Dates: start: 20110409, end: 20110509
  2. VOTRIENT [Suspect]
     Indication: SARCOMA
     Dosage: 200MG QID PO
     Route: 048
     Dates: start: 20110409, end: 20110509

REACTIONS (2)
  - HEPATIC ENZYME INCREASED [None]
  - JAUNDICE [None]
